FAERS Safety Report 6928156-7 (Version None)
Quarter: 2010Q3

REPORT INFORMATION
  Report Type: 
  Country: None (occurrence: None)
  Receive Date: 20100812
  Receipt Date: 20100802
  Transmission Date: 20110219
  Serious: Yes (Death, Hospitalization, Other)
  Sender: FDA-Public Use
  Company Number: 10-084

PATIENT
  Age: 71 Year
  Sex: Male

DRUGS (1)
  1. TERBINAFINE HCL [Suspect]
     Indication: TINEA PEDIS
     Dosage: 250 MG;QD

REACTIONS (13)
  - ALANINE AMINOTRANSFERASE INCREASED [None]
  - ASCITES [None]
  - ASPARTATE AMINOTRANSFERASE INCREASED [None]
  - CYTOMEGALOVIRUS INFECTION [None]
  - DRUG RASH WITH EOSINOPHILIA AND SYSTEMIC SYMPTOMS [None]
  - ILEAL PERFORATION [None]
  - LEUKOCYTOSIS [None]
  - LYMPHADENOPATHY [None]
  - PERITONITIS [None]
  - PNEUMONIA [None]
  - ROSEOLOVIRUS TEST POSITIVE [None]
  - SKIN EXFOLIATION [None]
  - VASCULITIS [None]
